FAERS Safety Report 11233647 (Version 1)
Quarter: 2015Q2

REPORT INFORMATION
  Report Type: Spontaneous
  Country: US (occurrence: None)
  Receive Date: 20150630
  Receipt Date: 20150630
  Transmission Date: 20150821
  Serious: Yes (Death)
  Sender: FDA-Public Use
  Company Number: 2015M1020846

PATIENT
  Sex: Female

DRUGS (1)
  1. CALCIUM CHLORIDE (CALCIUM CHLORIDE) [Suspect]
     Active Substance: CALCIUM CHLORIDE
     Indication: CARDIAC ARREST

REACTIONS (3)
  - Device failure [None]
  - Syringe issue [None]
  - Product quality issue [None]

NARRATIVE: CASE EVENT DATE: 201506
